FAERS Safety Report 7176512-7 (Version None)
Quarter: 2010Q4

REPORT INFORMATION
  Report Type: 
  Country: None (occurrence: None)
  Receive Date: 20101215
  Receipt Date: 20101215
  Transmission Date: 20110411
  Serious: Yes (Other)
  Sender: FDA-Public Use
  Company Number: None

PATIENT
  Age: 3 Year
  Sex: Female
  Weight: 4.3092 kg

DRUGS (3)
  1. ELESTRIN [Suspect]
     Indication: HORMONE REPLACEMENT THERAPY
     Dosage: .52 MG OF ESTRADIOL PER ACTUAT QD HS TOP
     Route: 061
     Dates: start: 20100505, end: 20101031
  2. PREDNISONE [Concomitant]
  3. HUMULIN N [Concomitant]

REACTIONS (1)
  - ACCIDENTAL EXPOSURE [None]
